FAERS Safety Report 10308952 (Version 3)
Quarter: 2014Q3

REPORT INFORMATION
  Report Type: Report from Study
  Country: US (occurrence: US)
  Receive Date: 20140716
  Receipt Date: 20140807
  Transmission Date: 20150326
  Serious: Yes (Congenital Anomaly, Other)
  Sender: FDA-Public Use
  Company Number: US-JNJFOC-20140707381

PATIENT
  Age: 1 Day
  Sex: Female
  Weight: 3.18 kg

DRUGS (5)
  1. NORVIR [Suspect]
     Active Substance: RITONAVIR
     Indication: HIV INFECTION
     Dosage: MOTHER DOSING
     Route: 064
     Dates: start: 20130801
  2. PREZISTA [Suspect]
     Active Substance: DARUNAVIR ETHANOLATE
     Indication: HIV INFECTION
     Dosage: MOTHER DOSING
     Route: 064
     Dates: start: 20130801
  3. RETROVIR [Suspect]
     Active Substance: ZIDOVUDINE
     Indication: HIV INFECTION
     Dosage: MOTHER DOSING
     Route: 064
     Dates: start: 20130916, end: 20130919
  4. RETROVIR [Suspect]
     Active Substance: ZIDOVUDINE
     Indication: HIV INFECTION
     Dosage: MOTHER DOSING
     Route: 064
     Dates: start: 20130916, end: 20130916
  5. TRUVADA [Suspect]
     Active Substance: EMTRICITABINE\TENOFOVIR DISOPROXIL FUMARATE
     Indication: HIV INFECTION
     Dosage: MOTHER DOSING
     Route: 064
     Dates: start: 20130801

REACTIONS (3)
  - Haemangioma [Recovered/Resolved]
  - Skin disorder [Recovered/Resolved]
  - Foetal exposure during pregnancy [Recovered/Resolved]

NARRATIVE: CASE EVENT DATE: 20130920
